FAERS Safety Report 17864683 (Version 1)
Quarter: 2020Q2

REPORT INFORMATION
  Report Type: Spontaneous
  Country: US (occurrence: US)
  Receive Date: 20200604
  Receipt Date: 20200604
  Transmission Date: 20200714
  Serious: Yes (Hospitalization)
  Sender: FDA-Public Use
  Company Number: None

PATIENT
  Age: 66 Year
  Sex: Female
  Weight: 55.34 kg

DRUGS (12)
  1. TUMS [Concomitant]
     Active Substance: CALCIUM CARBONATE
  2. ESTROGEN CREAM [Concomitant]
  3. CITRACAL [Concomitant]
     Active Substance: CALCIUM CITRATE
  4. RECLAST [Suspect]
     Active Substance: ZOLEDRONIC ACID
  5. VALIUM [Concomitant]
     Active Substance: DIAZEPAM
  6. BIOTIN [Concomitant]
     Active Substance: BIOTIN
  7. BIOHM PROBIOTIC [Concomitant]
  8. LISINOPRIL. [Concomitant]
     Active Substance: LISINOPRIL
  9. ESTRODIOL [Concomitant]
     Active Substance: ESTRADIOL
  10. MACROBID [Concomitant]
     Active Substance: NITROFURANTOIN\NITROFURANTOIN MONOHYDRATE
  11. FOSAMAX [Suspect]
     Active Substance: ALENDRONATE SODIUM
     Indication: OSTEOPOROSIS PROPHYLAXIS
     Dosage: ?          QUANTITY:70 MG MILLIGRAM(S);?
     Route: 048
     Dates: start: 20200330, end: 20200413
  12. MULTIVITAMIN [Concomitant]
     Active Substance: VITAMINS

REACTIONS (16)
  - Insomnia [None]
  - Haematemesis [None]
  - Throat irritation [None]
  - Dyspnoea [None]
  - Pneumonia [None]
  - Malaise [None]
  - Blood potassium decreased [None]
  - Hiatus hernia [None]
  - Nausea [None]
  - Vomiting [None]
  - Abdominal discomfort [None]
  - Chest pain [None]
  - Fatigue [None]
  - Oral discomfort [None]
  - Diarrhoea [None]
  - Oropharyngeal pain [None]

NARRATIVE: CASE EVENT DATE: 20200404
